FAERS Safety Report 6045203-8 (Version None)
Quarter: 2009Q1

REPORT INFORMATION
  Report Type: 
  Country: None (occurrence: None)
  Receive Date: 20090121
  Receipt Date: 20090115
  Transmission Date: 20090719
  Serious: Yes (Death)
  Sender: FDA-Public Use
  Company Number: IN-ROCHE-606041

PATIENT
  Age: 53 Year
  Sex: Male
  Weight: 69 kg

DRUGS (7)
  1. METHOXY POLYETHYLENE GLYCOL-EPOETIN BETA [Suspect]
     Route: 042
     Dates: start: 20081203, end: 20081216
  2. IRON SUCROSE [Concomitant]
     Dates: start: 20080802
  3. VITAMIN B-12 [Concomitant]
     Dates: start: 20080801
  4. PHOSTAT [Concomitant]
     Dates: start: 20080101
  5. ALPHA D3 [Concomitant]
     Dates: start: 20080101
  6. ARKAMINE [Concomitant]
  7. MIXTARD HUMAN 70/30 [Concomitant]
     Dates: start: 20020101

REACTIONS (1)
  - DEATH [None]
